FAERS Safety Report 4673721-3 (Version None)
Quarter: 2005Q2

REPORT INFORMATION
  Report Type: 
  Country: None (occurrence: None)
  Receive Date: 20050523
  Receipt Date: 20050509
  Transmission Date: 20051028
  Serious: Yes (Hospitalization, Other)
  Sender: FDA-Public Use
  Company Number: 2004237775US

PATIENT
  Age: 74 Year
  Sex: Female
  Weight: 77.1115 kg

DRUGS (4)
  1. BEXTRA [Suspect]
     Indication: BACK PAIN
     Dosage: 20 MG (1 IN 1 D)
     Dates: start: 20040701, end: 20040901
  2. NORVASC [Concomitant]
  3. COZAAR [Concomitant]
  4. TOPROL-XL [Concomitant]

REACTIONS (6)
  - CARDIAC STRESS TEST ABNORMAL [None]
  - CONDUCTION DISORDER [None]
  - DIZZINESS [None]
  - EXTRASYSTOLES [None]
  - INTERVERTEBRAL DISC DISORDER [None]
  - PAIN [None]
